FAERS Safety Report 4914882-8 (Version None)
Quarter: 2006Q1

REPORT INFORMATION
  Report Type: 
  Country: None (occurrence: None)
  Receive Date: 20060217
  Receipt Date: 20060203
  Transmission Date: 20060701
  Serious: Yes (Hospitalization)
  Sender: FDA-Public Use
  Company Number: FR-JNJFOC-20060203299

PATIENT
  Age: 39 Year
  Sex: Male

DRUGS (15)
  1. TOPALGIC [Suspect]
     Indication: POST-TRAUMATIC PAIN
     Route: 065
     Dates: start: 20050708, end: 20050708
  2. DI-ANTALVIC [Suspect]
     Route: 048
     Dates: start: 20050711, end: 20050711
  3. DI-ANTALVIC [Suspect]
     Indication: POST-TRAUMATIC PAIN
     Route: 048
     Dates: start: 20050711, end: 20050711
  4. PERFALGAN [Concomitant]
     Indication: POST-TRAUMATIC PAIN
     Route: 042
     Dates: start: 20050707, end: 20050710
  5. TERALITHE [Concomitant]
     Route: 048
  6. LEPTICUR [Concomitant]
     Route: 048
  7. OMEPRAZOLE [Concomitant]
     Route: 048
     Dates: start: 20050707, end: 20050707
  8. HEPTAMYL [Concomitant]
     Route: 048
  9. RISPERDAL [Concomitant]
     Route: 065
  10. TERCIAN [Concomitant]
     Route: 065
  11. VALIUM [Concomitant]
     Route: 065
  12. TRANXENE [Concomitant]
     Route: 065
  13. INNOHEP [Concomitant]
     Route: 058
     Dates: start: 20050708
  14. DOLIPRANE [Concomitant]
     Route: 048
     Dates: start: 20050712
  15. AERIUS [Concomitant]
     Route: 048
     Dates: start: 20050713

REACTIONS (2)
  - ERYTHEMA [None]
  - GENERALISED OEDEMA [None]
